FAERS Safety Report 6046891-2 (Version None)
Quarter: 2009Q1

REPORT INFORMATION
  Report Type: 
  Country: None (occurrence: None)
  Receive Date: 20090122
  Receipt Date: 20090116
  Transmission Date: 20090719
  Serious: Yes (Other)
  Sender: FDA-Public Use
  Company Number: B0554534A

PATIENT
  Age: 11 Month
  Sex: Male
  Weight: 9.4 kg

DRUGS (1)
  1. CLAMOXYL [Suspect]
     Indication: BRONCHOPNEUMOPATHY
     Dosage: 4.5G PER DAY
     Route: 048
     Dates: start: 20081205, end: 20081206

REACTIONS (1)
  - ACCIDENTAL OVERDOSE [None]
